FAERS Safety Report 9690727 (Version 1)
Quarter: 2013Q4

REPORT INFORMATION
  Report Type: Spontaneous
  Country: US (occurrence: None)
  Receive Date: 20131114
  Receipt Date: 20131114
  Transmission Date: 20140711
  Serious: No
  Sender: FDA-Public Use
  Company Number: None

PATIENT
  Age: 55 Year
  Sex: Female
  Weight: 58.97 kg

DRUGS (1)
  1. LATISSE [Suspect]
     Indication: MADAROSIS
     Dates: start: 20130102, end: 20131115

REACTIONS (3)
  - Iris disorder [None]
  - Eye colour change [None]
  - Product label issue [None]
